FAERS Safety Report 5781201-7 (Version None)
Quarter: 2008Q2

REPORT INFORMATION
  Report Type: 
  Country: None (occurrence: None)
  Receive Date: 20080618
  Receipt Date: 20080606
  Transmission Date: 20081010
  Serious: Yes (Hospitalization)
  Sender: FDA-Public Use
  Company Number: 238277K07USA

PATIENT
  Age: 46 Year
  Sex: Female
  Weight: 57.38 kg

DRUGS (4)
  1. REBIF [Suspect]
     Indication: MULTIPLE SCLEROSIS
     Dosage: 44 MCG, 3 IN 1 WEEKS, SUBCUTANEOUS
     Route: 058
     Dates: start: 20050706
  2. ASPIRIN [Concomitant]
  3. MOBIC [Concomitant]
  4. HYDROXYCHLOROQUINE SULFATE [Concomitant]

REACTIONS (9)
  - ATRIAL FIBRILLATION [None]
  - CHEST DISCOMFORT [None]
  - DISEASE RECURRENCE [None]
  - FATIGUE [None]
  - HYPERSENSITIVITY [None]
  - HYPOAESTHESIA [None]
  - PAIN [None]
  - SINUS CONGESTION [None]
  - VISION BLURRED [None]
